FAERS Safety Report 6755449-9 (Version None)
Quarter: 2010Q2

REPORT INFORMATION
  Report Type: 
  Country: None (occurrence: None)
  Receive Date: 20100604
  Receipt Date: 20100526
  Transmission Date: 20101027
  Serious: Yes (Other)
  Sender: FDA-Public Use
  Company Number: CA-JNJFOC-20100510087

PATIENT
  Sex: Male
  Weight: 108 kg

DRUGS (4)
  1. REMICADE [Suspect]
     Indication: COLITIS ULCERATIVE
     Route: 042
  2. REMICADE [Suspect]
     Route: 042
  3. ADVAIR DISKUS 100/50 [Concomitant]
     Indication: ASTHMA
  4. VENTOLIN [Concomitant]
     Indication: ASTHMA

REACTIONS (7)
  - ERYTHEMA [None]
  - HEADACHE [None]
  - HEART RATE DECREASED [None]
  - INFUSION RELATED REACTION [None]
  - LOSS OF CONSCIOUSNESS [None]
  - SINUSITIS [None]
  - UNEVALUABLE EVENT [None]
